FAERS Safety Report 15437944 (Version 2)
Quarter: 2018Q4

REPORT INFORMATION
  Report Type: Spontaneous
  Country: FR (occurrence: FR)
  Receive Date: 20180928
  Receipt Date: 20181017
  Transmission Date: 20190204
  Serious: No
  Sender: FDA-Public Use
  Company Number: FR-PROVELL PHARMACEUTICALS-2055445

PATIENT
  Age: 58 Year
  Sex: Female

DRUGS (3)
  1. EUTHYROX [Suspect]
     Active Substance: LEVOTHYROXINE SODIUM
     Indication: THYROID DISORDER
     Dates: start: 1990
  2. EUTHYROX [Suspect]
     Active Substance: LEVOTHYROXINE SODIUM
     Dates: end: 2017
  3. INEXIUM [Concomitant]
     Active Substance: ESOMEPRAZOLE

REACTIONS (22)
  - Hepatic steatosis [None]
  - Pain [None]
  - Liver disorder [None]
  - Fatigue [None]
  - Renal cyst [None]
  - Intervertebral disc degeneration [None]
  - Palpitations [None]
  - Tremor [None]
  - Hepatomegaly [None]
  - Reaction to excipient [None]
  - Yellow skin [None]
  - Hyperhidrosis [None]
  - Swelling [None]
  - Joint swelling [None]
  - Dyspnoea [None]
  - Malaise [None]
  - Vertigo [None]
  - Pain in extremity [None]
  - Abdominal pain upper [None]
  - Lactose intolerance [None]
  - Weight decreased [None]
  - Insomnia [None]

NARRATIVE: CASE EVENT DATE: 19940307
